FAERS Safety Report 10713286 (Version 1)
Quarter: 2015Q1

REPORT INFORMATION
  Report Type: Spontaneous
  Country: US (occurrence: US)
  Receive Date: 20150115
  Receipt Date: 20150115
  Transmission Date: 20150721
  Serious: Yes (Death, Hospitalization)
  Sender: FDA-Public Use
  Company Number: US-BAYER-2015-004610

PATIENT
  Age: 78 Year
  Sex: Female

DRUGS (11)
  1. WARFARIN [Suspect]
     Active Substance: WARFARIN
     Route: 048
  2. TRAMADOL [Suspect]
     Active Substance: TRAMADOL
     Route: 048
  3. METOPROLOL [Suspect]
     Active Substance: METOPROLOL
     Route: 048
  4. PRIMIDONE. [Suspect]
     Active Substance: PRIMIDONE
     Route: 048
  5. AMOXICILLIN. [Suspect]
     Active Substance: AMOXICILLIN
     Route: 048
  6. CIPROFLOXACIN. [Suspect]
     Active Substance: CIPROFLOXACIN
     Route: 048
  7. DOCUSATE [Suspect]
     Active Substance: DOCUSATE
     Route: 048
  8. ONDANSETRON [Suspect]
     Active Substance: ONDANSETRON
     Route: 048
  9. CELECOXIB. [Suspect]
     Active Substance: CELECOXIB
     Route: 048
  10. ESOMEPRAZOLE [Suspect]
     Active Substance: ESOMEPRAZOLE
     Route: 048
  11. FUROSEMIDE. [Suspect]
     Active Substance: FUROSEMIDE
     Route: 048

REACTIONS (1)
  - Toxicity to various agents [Fatal]
